FAERS Safety Report 9116781 (Version 1)
Quarter: 2013Q1

REPORT INFORMATION
  Report Type: Spontaneous
  Country: US (occurrence: US)
  Receive Date: 20130225
  Receipt Date: 20130225
  Transmission Date: 20140127
  Serious: No
  Sender: FDA-Public Use
  Company Number: US-ENDO PHARMACEUTICALS INC.-FORT20110002

PATIENT
  Age: 69 Year
  Sex: Male

DRUGS (1)
  1. FORTESTA [Suspect]
     Indication: ANDROGEN DEFICIENCY
     Route: 061
     Dates: start: 20110313

REACTIONS (2)
  - Nightmare [Recovered/Resolved]
  - Rash pruritic [Not Recovered/Not Resolved]
